FAERS Safety Report 6168378-9 (Version None)
Quarter: 2009Q2

REPORT INFORMATION
  Report Type: 
  Country: None (occurrence: None)
  Receive Date: 20090427
  Receipt Date: 20090420
  Transmission Date: 20091009
  Serious: Yes (Hospitalization)
  Sender: FDA-Public Use
  Company Number: AU-AVENTIS-200914157GDDC

PATIENT
  Age: 68 Year
  Sex: Female

DRUGS (1)
  1. ARAVA [Suspect]
     Dates: start: 20040601

REACTIONS (2)
  - CEREBRAL HAEMORRHAGE [None]
  - LOSS OF CONSCIOUSNESS [None]
